FAERS Safety Report 23577828 (Version 1)
Quarter: 2024Q1

REPORT INFORMATION
  Report Type: Report from Study
  Country: MX (occurrence: MX)
  Receive Date: 20240228
  Receipt Date: 20240228
  Transmission Date: 20240410
  Serious: Yes (Hospitalization)
  Sender: FDA-Public Use
  Company Number: MX-JNJFOC-20240268757

PATIENT
  Age: 19 Year
  Sex: Male

DRUGS (2)
  1. SPRAVATO [Suspect]
     Active Substance: ESKETAMINE
     Indication: Major depression
     Dates: start: 20240221
  2. SPRAVATO [Suspect]
     Active Substance: ESKETAMINE
     Indication: Suicidal ideation

REACTIONS (1)
  - Suicide attempt [Not Recovered/Not Resolved]

NARRATIVE: CASE EVENT DATE: 20240221
